FAERS Safety Report 20206131 (Version 1)
Quarter: 2021Q4

REPORT INFORMATION
  Report Type: Spontaneous
  Country: US (occurrence: None)
  Receive Date: 20211217
  Receipt Date: 20211217
  Transmission Date: 20220304
  Serious: Yes (Hospitalization, Disabling)
  Sender: FDA-Public Use
  Company Number: None

PATIENT
  Age: 36 Year
  Sex: Female
  Weight: 61.2 kg

DRUGS (1)
  1. VRAYLAR [Suspect]
     Active Substance: CARIPRAZINE
     Indication: Bipolar II disorder
     Dosage: FREQUENCY : DAILY;?
     Route: 048
     Dates: start: 20210917, end: 20210921

REACTIONS (5)
  - Syncope [None]
  - Head injury [None]
  - Injury [None]
  - Presyncope [None]
  - Akathisia [None]

NARRATIVE: CASE EVENT DATE: 20210921
